FAERS Safety Report 20907307 (Version 4)
Quarter: 2022Q3

REPORT INFORMATION
  Report Type: Spontaneous
  Country: NL (occurrence: NL)
  Receive Date: 20220602
  Receipt Date: 20220817
  Transmission Date: 20221027
  Serious: Yes (Death, Life-Threatening)
  Sender: FDA-Public Use
  Company Number: NL-Daleco-2018-NL-000074

PATIENT
  Age: 47 Year
  Sex: Female
  Weight: 80 kg

DRUGS (9)
  1. DESLORATADINE [Interacting]
     Active Substance: DESLORATADINE
     Dosage: 5 MILLIGRAM, QD
     Dates: start: 20150421
  2. TRANYLCYPROMINE SULFATE [Interacting]
     Active Substance: TRANYLCYPROMINE SULFATE
     Indication: Depression
     Dosage: ONCE DAILY 3 TABLETS
     Route: 048
     Dates: start: 20150813, end: 20180813
  3. NARDIL [Suspect]
     Active Substance: PHENELZINE SULFATE
     Indication: Depression
     Dosage: 45 MILLIGRAM, QD
     Dates: start: 20150512, end: 20180812
  4. DIAZEPAM [Suspect]
     Active Substance: DIAZEPAM
     Dosage: 5 MG, QD
     Dates: start: 20100907
  5. DIAZEPAM [Suspect]
     Active Substance: DIAZEPAM
     Dosage: 2.5 MG, BID
     Dates: start: 20100907
  6. TRANYLCYPROMINE [Interacting]
     Active Substance: TRANYLCYPROMINE
     Indication: Depression
     Dosage: 3 DF, QD
     Dates: start: 20180813
  7. PHENELZINE SULFATE [Suspect]
     Active Substance: PHENELZINE SULFATE
     Indication: Depression
     Dosage: 45 MG, QD
     Dates: start: 20150512, end: 20180812
  8. OMEPRAZOLE [Concomitant]
     Active Substance: OMEPRAZOLE
     Dosage: 20 MG, QD
     Dates: start: 20130312
  9. BISACODYL [Concomitant]
     Active Substance: BISACODYL
     Dosage: 10 MG, QD
     Dates: start: 20180718

REACTIONS (6)
  - Haemorrhage intracranial [Fatal]
  - Hypertensive crisis [Fatal]
  - Product prescribing error [Fatal]
  - Drug dose titration not performed [Fatal]
  - Contraindicated product administered [Not Recovered/Not Resolved]
  - Potentiating drug interaction [Fatal]

NARRATIVE: CASE EVENT DATE: 20180813
